FAERS Safety Report 9410227 (Version 1)
Quarter: 2013Q3

REPORT INFORMATION
  Report Type: Report from Study
  Country: US (occurrence: US)
  Receive Date: 20130719
  Receipt Date: 20130719
  Transmission Date: 20140515
  Serious: Yes (Hospitalization, Other)
  Sender: FDA-Public Use
  Company Number: US-CELGENEUS-163-C4047-13071914

PATIENT
  Age: 73 Year
  Sex: Female
  Weight: 87 kg

DRUGS (22)
  1. CC-4047 [Suspect]
     Indication: PLASMA CELL MYELOMA
     Dosage: 2 MILLIGRAM
     Route: 065
     Dates: start: 20080319
  2. CC-4047 [Suspect]
     Dosage: 1 MILLIGRAM
     Route: 065
     Dates: start: 20130614, end: 20130704
  3. CC-4047 [Suspect]
     Dosage: 1 MILLIGRAM
     Route: 065
     Dates: start: 20130705
  4. DEXAMETHASONE [Suspect]
     Indication: PRODUCT USED FOR UNKNOWN INDICATION
     Dosage: 40 MILLIGRAM
     Route: 065
     Dates: start: 20080319
  5. DEXAMETHASONE [Suspect]
     Route: 065
     Dates: start: 20130614
  6. ASPIRIN [Concomitant]
     Indication: THROMBOSIS PROPHYLAXIS
     Dosage: 81 MILLIGRAM
     Route: 048
     Dates: end: 20130704
  7. ASPIRIN [Concomitant]
     Indication: THROMBOSIS PROPHYLAXIS
  8. LASIX [Concomitant]
     Indication: PRODUCT USED FOR UNKNOWN INDICATION
     Dosage: 40 MILLIGRAM
     Route: 048
  9. MINOCYCLINE [Concomitant]
     Indication: PRODUCT USED FOR UNKNOWN INDICATION
     Route: 065
  10. ACETAMINOPHEN [Concomitant]
     Indication: HEADACHE
     Dosage: 325 MG, 1- 2 TABS
     Route: 048
  11. ACETAMINOPHEN [Concomitant]
     Indication: PAIN
  12. ACYCLOVIR [Concomitant]
     Indication: PRODUCT USED FOR UNKNOWN INDICATION
     Dosage: 800 MILLIGRAM
     Route: 048
  13. ALBUTEROL-IPRATROPIUM [Concomitant]
     Indication: PRODUCT USED FOR UNKNOWN INDICATION
     Dosage: (2.5-0.5 MG) IN 3 ML SOLUTION
     Route: 065
  14. AMITRIPTYLINE [Concomitant]
     Indication: NEURALGIA
     Dosage: 75 MILLIGRAM
     Route: 048
  15. CHOLECALCIFEROL [Concomitant]
     Indication: VITAMIN SUPPLEMENTATION
     Dosage: 1,000 UNITS
     Route: 048
  16. DIPHENHYDRAMINE [Concomitant]
     Indication: PRODUCT USED FOR UNKNOWN INDICATION
     Route: 048
  17. GABAPENTIN [Concomitant]
     Indication: PRODUCT USED FOR UNKNOWN INDICATION
     Dosage: 900 MILLIGRAM
     Route: 048
  18. LISINOPRIL [Concomitant]
     Indication: PRODUCT USED FOR UNKNOWN INDICATION
     Dosage: 2.5 MILLIGRAM
     Route: 048
  19. AMITRIPTYLINE-KETAMINE-LIDOCAINE [Concomitant]
     Indication: POST HERPETIC NEURALGIA
     Route: 061
  20. METOPROLOL TARTRATE [Concomitant]
     Indication: PRODUCT USED FOR UNKNOWN INDICATION
     Dosage: 12.5 MILLIGRAM
     Route: 048
  21. TRIMETHOPRIM SULFAMETHOXAZOLE [Concomitant]
     Indication: PROPHYLAXIS
     Dosage: 80-400 MG
     Route: 048
  22. VASELINE [Concomitant]
     Indication: SKIN GRAFT
     Route: 061
     Dates: start: 2013

REACTIONS (2)
  - Basal cell carcinoma [Unknown]
  - Lower gastrointestinal haemorrhage [Recovered/Resolved]
